FAERS Safety Report 9854220 (Version 1)
Quarter: 2014Q1

REPORT INFORMATION
  Report Type: Spontaneous
  Country: GB (occurrence: GB)
  Receive Date: 20140130
  Receipt Date: 20140130
  Transmission Date: 20141002
  Serious: Yes (Disabling)
  Sender: FDA-Public Use
  Company Number: GB-009507513-1401GBR012399

PATIENT
  Age: 60 Year
  Sex: Male
  Weight: 82.55 kg

DRUGS (14)
  1. SIMVASTATIN [Suspect]
     Indication: HYPERCHOLESTEROLAEMIA
     Dosage: UNK
     Route: 048
     Dates: start: 20100404
  2. ROSUVASTATIN CALCIUM [Suspect]
     Indication: HYPERCHOLESTEROLAEMIA
  3. STATIN (UNSPECIFIED) [Suspect]
     Indication: HYPERCHOLESTEROLAEMIA
     Dosage: UNK
  4. ASPIRIN [Concomitant]
     Dosage: 75 MG, UNK
  5. ACETAMINOPHEN (+) CODEINE PHOSPHATE [Concomitant]
  6. DEEP HEAT [Concomitant]
     Indication: ARTHRALGIA
     Dosage: UNK, QD
  7. GREEN-LIPPED MUSSEL [Concomitant]
     Dosage: 500 MG, UNK
  8. IBUPROFEN [Concomitant]
     Dosage: 600 MG, UNK
  9. INSULIN GLARGINE [Concomitant]
     Dosage: 30 IU, QD
  10. INSULIN GLULISINE [Concomitant]
     Dosage: 3 DF, UNK
  11. LAXIDO [Concomitant]
     Indication: GASTROINTESTINAL DISORDER
     Dosage: UNK, PRN
  12. METFORMIN [Concomitant]
     Dosage: UNK UNK, BID
  13. OMEPRAZOLE [Concomitant]
     Dosage: 20 MG, UNK
     Dates: start: 201311
  14. VOLTAROL [Concomitant]
     Indication: ARTHRALGIA

REACTIONS (2)
  - Muscle atrophy [Recovered/Resolved]
  - Amnesia [Recovered/Resolved]
